FAERS Safety Report 24538413 (Version 1)
Quarter: 2024Q4

REPORT INFORMATION
  Report Type: Spontaneous
  Country: CZ (occurrence: CZ)
  Receive Date: 20241023
  Receipt Date: 20241023
  Transmission Date: 20250114
  Serious: Yes (Hospitalization, Other)
  Sender: ACCORD
  Company Number: CZ-EMA-DD-20241001-7482643-140902

PATIENT
  Age: 53 Year
  Sex: Female

DRUGS (10)
  1. CAPECITABINE [Suspect]
     Active Substance: CAPECITABINE
     Indication: Colorectal cancer metastatic
     Dosage: UNK, CYCLE (UNK UNK, QCY)
     Dates: start: 202106
  2. IRINOTECAN [Suspect]
     Active Substance: IRINOTECAN
     Indication: Colorectal cancer
     Dosage: UNK
     Dates: start: 201808
  3. OXALIPLATIN [Suspect]
     Active Substance: OXALIPLATIN
     Indication: Colorectal cancer metastatic
     Dosage: UNK UNK, CYCLE (UNK UNK, QCY, INFUSION)
     Dates: start: 202106
  4. LEUCOVORIN [Concomitant]
     Active Substance: LEUCOVORIN\LEUCOVORIN CALCIUM
     Indication: Colorectal cancer
     Dosage: UNK
     Dates: start: 201808
  5. FLUOROURACIL [Concomitant]
     Active Substance: FLUOROURACIL
     Indication: Colorectal cancer
     Dosage: UNK
     Dates: start: 201808
  6. ZALTRAP [Concomitant]
     Active Substance: ZIV-AFLIBERCEPT
     Indication: Colorectal cancer
     Dosage: UNK
     Dates: start: 201808, end: 202002
  7. AMLODIPINE BESYLATE [Concomitant]
     Active Substance: AMLODIPINE BESYLATE
     Indication: Hypertension
     Dosage: UNK
  8. INDAP [Concomitant]
     Indication: Hypertension
     Dosage: UNK
  9. ASPIRIN\GLYCINE [Concomitant]
     Active Substance: ASPIRIN\GLYCINE
     Indication: Hypertension
     Dosage: UNK
  10. OMEPRAZOLE [Concomitant]
     Active Substance: OMEPRAZOLE
     Dosage: UNK

REACTIONS (5)
  - Palmar-plantar erythrodysaesthesia syndrome [Recovered/Resolved]
  - Neurotoxicity [Unknown]
  - Disease progression [Unknown]
  - Diarrhoea [Recovered/Resolved]
  - Muscle spasms [Unknown]

NARRATIVE: CASE EVENT DATE: 20210601
